FAERS Safety Report 5314326-0 (Version None)
Quarter: 2007Q2

REPORT INFORMATION
  Report Type: 
  Country: None (occurrence: None)
  Receive Date: 20070502
  Receipt Date: 20070421
  Transmission Date: 20071010
  Serious: Yes (Other)
  Sender: FDA-Public Use
  Company Number: US-JNJFOC-20070404962

PATIENT
  Sex: Female
  Weight: 69.85 kg

DRUGS (2)
  1. CHILDRENS TYLENOL LIQUID DYE-FREE CHERRY [Suspect]
     Indication: PYREXIA
  2. CHILDRENS TYLENOL LIQUID DYE-FREE CHERRY [Suspect]
     Indication: BRONCHITIS

REACTIONS (5)
  - ASTHENIA [None]
  - DIARRHOEA [None]
  - GASTROINTESTINAL PAIN [None]
  - NAUSEA [None]
  - WEIGHT DECREASED [None]
